FAERS Safety Report 10062686 (Version 1)
Quarter: 2014Q1

REPORT INFORMATION
  Report Type: Spontaneous
  Country: US (occurrence: None)
  Receive Date: 20140328
  Receipt Date: 20140328
  Transmission Date: 20141002
  Serious: Yes (Other)
  Sender: FDA-Public Use
  Company Number: 1000053060

PATIENT
  Age: 86 Year
  Sex: Male

DRUGS (10)
  1. LINZESS (LINACLOTIDE) [Suspect]
     Indication: CONSTIPATION
     Dates: start: 201309, end: 201309
  2. LINZESS (LINACLOTIDE) (290 MICROGRAM, CAPSULES) [Suspect]
     Indication: CONSTIPATION
     Route: 048
     Dates: start: 20140119, end: 20140121
  3. CARVEDILOL (CARVEDILOL) [Concomitant]
  4. TAMSULOSIN [Concomitant]
  5. LISINOPRIL [Concomitant]
  6. DIGOXIN [Concomitant]
  7. SIMVASTATIN [Concomitant]
  8. NIFEDIPINE [Concomitant]
  9. AMIODARONE [Concomitant]
  10. SPIRONOLACTONE [Concomitant]

REACTIONS (4)
  - Intentional overdose [None]
  - Drug ineffective [None]
  - Off label use [None]
  - Intentional drug misuse [None]
